FAERS Safety Report 19198379 (Version 1)
Quarter: 2021Q2

REPORT INFORMATION
  Report Type: Report from Study
  Country: US (occurrence: US)
  Receive Date: 20210430
  Receipt Date: 20210430
  Transmission Date: 20210717
  Serious: Yes (Other)
  Sender: FDA-Public Use
  Company Number: US-JNJFOC-20210449903

PATIENT

DRUGS (8)
  1. DARZALEX [Suspect]
     Active Substance: DARATUMUMAB
     Indication: PLASMA CELL MYELOMA
     Dosage: DAYS 1, 8, 15, AND 22 [CYCLES 1?2]; DAYS 1 AND 15 [CYCLES 3?6]; AND DAY 1 [CYCLES 7?8]
     Route: 042
  2. CARFILZOMIB [Suspect]
     Active Substance: CARFILZOMIB
     Indication: PLASMA CELL MYELOMA
     Dosage: 20/56 MG/M2
     Route: 065
  3. DEXAMETHASONE. [Suspect]
     Active Substance: DEXAMETHASONE
     Indication: PLASMA CELL MYELOMA
     Route: 048
  4. WARFAR [Concomitant]
     Indication: THROMBOSIS PROPHYLAXIS
  5. RIVAROXABAN [Concomitant]
     Active Substance: RIVAROXABAN
  6. LOW?MOLECULAR?WEIGHT HEPARIN [Concomitant]
     Active Substance: UNSPECIFIED INGREDIENT
     Indication: THROMBOSIS PROPHYLAXIS
  7. LENALIDOMIDE [Suspect]
     Active Substance: LENALIDOMIDE
     Indication: PLASMA CELL MYELOMA
     Dosage: DAYS 1?21
     Route: 048
  8. ASPIRIN. [Concomitant]
     Active Substance: ASPIRIN
     Indication: THROMBOSIS PROPHYLAXIS

REACTIONS (7)
  - Pneumonia [Unknown]
  - Alanine aminotransferase increased [Unknown]
  - Infusion related reaction [Unknown]
  - Lung neoplasm malignant [Unknown]
  - Neutropenia [Unknown]
  - Rash [Unknown]
  - Acute coronary syndrome [Unknown]
